FAERS Safety Report 4668845-0 (Version None)
Quarter: 2005Q2

REPORT INFORMATION
  Report Type: 
  Country: None (occurrence: None)
  Receive Date: 20050519
  Receipt Date: 20050509
  Transmission Date: 20051028
  Serious: Yes (Death, Hospitalization)
  Sender: FDA-Public Use
  Company Number: WAES 0505GBR00076

PATIENT
  Age: 69 Year
  Sex: Male

DRUGS (4)
  1. VIOXX [Suspect]
     Indication: NEOPLASM PROPHYLAXIS
     Dosage: 25 MG/DAILY, PO
     Route: 048
     Dates: start: 20021125, end: 20040930
  2. CLOMIPRAMINE HCL [Concomitant]
  3. LACTULOSE [Concomitant]
  4. OXYBUTYNIN [Concomitant]

REACTIONS (6)
  - BLOOD PH INCREASED [None]
  - BLOOD SODIUM DECREASED [None]
  - CARDIAC ARREST [None]
  - CHILLS [None]
  - PCO2 DECREASED [None]
  - PLEURAL EFFUSION [None]
